FAERS Safety Report 10209358 (Version 1)
Quarter: 2014Q2

REPORT INFORMATION
  Report Type: Other
  Country: CN (occurrence: CN)
  Receive Date: 20140531
  Receipt Date: 20140531
  Transmission Date: 20141212
  Serious: Yes (Death)
  Sender: FDA-Public Use
  Company Number: CN-LUPIN PHARMACEUTICALS INC.-2013-01668

PATIENT
  Age: 2 Year
  Sex: Female

DRUGS (2)
  1. CEFTRIAXONE [Suspect]
     Indication: UPPER RESPIRATORY TRACT INFECTION
     Route: 065
  2. CEFTRIAXONE [Suspect]
     Indication: PYREXIA

REACTIONS (1)
  - Respiratory failure [Fatal]
